FAERS Safety Report 8144854-4 (Version None)
Quarter: 2012Q1

REPORT INFORMATION
  Report Type: 
  Country: None (occurrence: None)
  Receive Date: 20120217
  Receipt Date: 20120130
  Transmission Date: 20120608
  Serious: Yes (Hospitalization)
  Sender: FDA-Public Use
  Company Number: US-GLAXOSMITHKLINE-A0963751A

PATIENT
  Age: 63 Year
  Sex: Female

DRUGS (6)
  1. TYKERB [Suspect]
     Indication: BREAST CANCER
     Dosage: 5TAB PER DAY
     Route: 048
     Dates: start: 20120127
  2. RADIATION [Concomitant]
  3. EFFEXOR [Concomitant]
  4. GEODON [Concomitant]
  5. REQUIP [Concomitant]
  6. ATARAX [Concomitant]

REACTIONS (4)
  - THROMBOSIS [None]
  - PAIN [None]
  - PAIN IN EXTREMITY [None]
  - RETCHING [None]
